FAERS Safety Report 7275150-5 (Version None)
Quarter: 2011Q1

REPORT INFORMATION
  Report Type: 
  Country: None (occurrence: None)
  Receive Date: 20110204
  Receipt Date: 20110124
  Transmission Date: 20110831
  Serious: Yes (Hospitalization, Other)
  Sender: FDA-Public Use
  Company Number: PHEH2008US00461

PATIENT
  Sex: Male
  Weight: 136.6 kg

DRUGS (42)
  1. PREDNISONE [Concomitant]
  2. DAPSONE [Concomitant]
     Dosage: 100 MG
  3. ALBUTEROL [Concomitant]
     Dosage: UNK
  4. LOPROX [Concomitant]
     Dosage: UNK
  5. TOBRADEX [Concomitant]
     Dosage: UNK
  6. SINEMET [Concomitant]
     Dosage: UNK
  7. BACTRIM [Concomitant]
     Dosage: UNK
  8. ISONIAZID [Concomitant]
  9. SELENIUM [Concomitant]
  10. AREDIA [Suspect]
     Dosage: 90 MG, QMO
     Route: 042
     Dates: start: 20000216, end: 20040101
  11. ZOMETA [Suspect]
     Dosage: 4 MG, UNK
     Dates: start: 20030110, end: 20030506
  12. RANITIN [Concomitant]
     Dosage: UNK
  13. CALTRATE [Concomitant]
     Dosage: UNK
  14. CIPRO [Concomitant]
     Dosage: 500 MG
  15. ZOMETA [Suspect]
     Dosage: 4 MG, UNK
     Route: 042
     Dates: start: 20040101
  16. MYSOLINE [Concomitant]
     Dosage: UNK
  17. DALMANE [Concomitant]
     Dosage: 40 MG BY MOUTH AT BEDTIME
  18. LUNESTA [Concomitant]
  19. AREDIA [Suspect]
     Dosage: UNK
     Dates: start: 20050101
  20. ACYCLOVIR [Concomitant]
     Dosage: UNK
  21. ZANTAC [Concomitant]
     Dosage: 150 MG BY MOUTH
  22. ISONIAZID [Concomitant]
     Dosage: UNK
  23. CARBIDOPA + LEVODOPA [Concomitant]
     Dosage: UNK
  24. EPOGEN [Concomitant]
     Dosage: UNK
  25. FLUCONAZOLE [Concomitant]
     Dosage: UNK
  26. OMEPRAZOLE [Concomitant]
     Dosage: UNK
  27. FLUZONE [Concomitant]
     Dosage: UNK
  28. ESZOPICLONE [Concomitant]
     Dosage: 2 MG
  29. BACITRACIN OPHTHALMIC OINTMENT [Concomitant]
     Dosage: UNK
  30. VITAMIN D [Concomitant]
  31. MAGNESIUM [Concomitant]
  32. VITAMIN B6 [Concomitant]
  33. AREDIA [Suspect]
     Dosage: UNK
     Dates: end: 20051111
  34. FLURAZEPAM [Concomitant]
     Dosage: 30 MG
  35. CLOTRIMAZOLE ^POLFA^ [Concomitant]
     Dosage: UNK
  36. SEREVENT [Concomitant]
     Dosage: UNK
  37. AMOXICILLIN [Concomitant]
     Dosage: 500 MG
  38. PENICILLIN VK [Concomitant]
     Dosage: UNK
  39. FAMVIR                                  /NET/ [Concomitant]
     Dosage: UNK
  40. ASPIRIN [Concomitant]
  41. SULFAMETHIZOLE TAB [Concomitant]
  42. MULTI-VITAMINS [Concomitant]

REACTIONS (45)
  - BONE DISORDER [None]
  - SWELLING [None]
  - ANAEMIA [None]
  - SPINAL DEFORMITY [None]
  - EDENTULOUS [None]
  - BONE DENSITY DECREASED [None]
  - GINGIVITIS [None]
  - TOOTH ABSCESS [None]
  - INFECTION [None]
  - HEPATOMEGALY [None]
  - OSTEONECROSIS OF JAW [None]
  - MASTICATION DISORDER [None]
  - IMPAIRED HEALING [None]
  - X-RAY ABNORMAL [None]
  - GOITRE [None]
  - PAIN [None]
  - ANXIETY [None]
  - SKIN LESION [None]
  - CYST [None]
  - GINGIVAL RECESSION [None]
  - TONGUE DISORDER [None]
  - INJURY [None]
  - ANHEDONIA [None]
  - OSTEITIS [None]
  - BONE LESION [None]
  - DENTAL PROSTHESIS USER [None]
  - NEUROPATHY PERIPHERAL [None]
  - AORTIC DISORDER [None]
  - DENTURE WEARER [None]
  - FATIGUE [None]
  - CELLULITIS [None]
  - RIB FRACTURE [None]
  - RETINOPATHY [None]
  - PROSTATIC SPECIFIC ANTIGEN INCREASED [None]
  - POOR PERSONAL HYGIENE [None]
  - DIVERTICULITIS [None]
  - HYPOGAMMAGLOBULINAEMIA [None]
  - ASTIGMATISM [None]
  - AZOTAEMIA [None]
  - FISTULA [None]
  - POLYP COLORECTAL [None]
  - OSTEOPENIA [None]
  - WOUND DEHISCENCE [None]
  - VISUAL ACUITY REDUCED [None]
  - RETINAL TEAR [None]
